FAERS Safety Report 21656770 (Version 1)
Quarter: 2022Q4

REPORT INFORMATION
  Report Type: Spontaneous
  Country: US (occurrence: None)
  Receive Date: 20221128
  Receipt Date: 20221128
  Transmission Date: 20230112
  Serious: Yes (Death)
  Sender: FDA-Public Use
  Company Number: None

PATIENT
  Age: 88 Year
  Sex: Male
  Weight: 129.59 kg

DRUGS (17)
  1. LENALIDOMIDE [Suspect]
     Active Substance: LENALIDOMIDE
     Indication: Myelodysplastic syndrome
     Dosage: FREQUENCY : DAILY;?
     Route: 048
     Dates: start: 20221014
  2. ALLOPURINOL [Concomitant]
     Active Substance: ALLOPURINOL
  3. COMBIGAN [Concomitant]
     Active Substance: BRIMONIDINE TARTRATE\TIMOLOL MALEATE
  4. FINASTERIDE [Concomitant]
     Active Substance: FINASTERIDE
  5. FLOMAX [Concomitant]
     Active Substance: TAMSULOSIN HYDROCHLORIDE
  6. GLUCOSAMINE [Concomitant]
     Active Substance: GLUCOSAMINE
  7. ISOSORBIDE [Concomitant]
     Active Substance: ISOSORBIDE
  8. LATANOPROST [Concomitant]
     Active Substance: LATANOPROST
  9. LEVOTHYROXINE [Suspect]
     Active Substance: LEVOTHYROXINE
  10. LISINOPRIL [Concomitant]
     Active Substance: LISINOPRIL
  11. NITROSTAT [Concomitant]
     Active Substance: NITROGLYCERIN
  12. OMEGA-3 ACIDS [Concomitant]
     Active Substance: OMEGA-3 FATTY ACIDS
  13. OMEPRAZOLE [Concomitant]
     Active Substance: OMEPRAZOLE
  14. ROSUVASTATIN [Concomitant]
     Active Substance: ROSUVASTATIN
  15. VITAMIN B COMPLEX-C [Concomitant]
  16. VITAMIN B12 [Concomitant]
     Active Substance: CYANOCOBALAMIN
  17. WARFARIN [Concomitant]
     Active Substance: WARFARIN

REACTIONS (1)
  - Death [None]

NARRATIVE: CASE EVENT DATE: 20221123
